FAERS Safety Report 18353049 (Version 2)
Quarter: 2021Q3

REPORT INFORMATION
  Report Type: Spontaneous
  Country: US (occurrence: US)
  Receive Date: 20201007
  Receipt Date: 20210729
  Transmission Date: 20211014
  Serious: Yes (Other)
  Sender: FDA-Public Use
  Company Number: US-SA-2020SA273272

PATIENT
  Age: 56 Year
  Sex: Male

DRUGS (1)
  1. ZANTAC [Suspect]
     Active Substance: RANITIDINE HYDROCHLORIDE
     Indication: DYSPEPSIA
     Dosage: UNK UNK, QD
     Dates: start: 198301, end: 201912

REACTIONS (3)
  - Colorectal cancer [Recovered/Resolved]
  - Bladder cancer [Recovered/Resolved]
  - Prostate cancer stage IV [Recovered/Resolved]

NARRATIVE: CASE EVENT DATE: 20090601
